FAERS Safety Report 7740272-9 (Version None)
Quarter: 2011Q3

REPORT INFORMATION
  Report Type: 
  Country: None (occurrence: None)
  Receive Date: 20110909
  Receipt Date: 20110902
  Transmission Date: 20111222
  Serious: Yes (Other)
  Sender: FDA-Public Use
  Company Number: US-ROCHE-801403

PATIENT
  Sex: Male

DRUGS (2)
  1. AVASTIN [Suspect]
     Route: 065
  2. TARCEVA [Suspect]
     Route: 065

REACTIONS (4)
  - TUMOUR MARKER INCREASED [None]
  - RASH [None]
  - ADVERSE REACTION [None]
  - DIARRHOEA [None]
